FAERS Safety Report 9725475 (Version 2)
Quarter: 2014Q1

REPORT INFORMATION
  Report Type: Spontaneous
  Country: US (occurrence: None)
  Receive Date: 20131127
  Receipt Date: 20140211
  Transmission Date: 20141002
  Serious: Yes (Other)
  Sender: FDA-Public Use
  Company Number: A1050783A

PATIENT
  Age: 38 Year
  Sex: Female

DRUGS (1)
  1. STANNOUS FLUORIDE [Suspect]
     Indication: SENSITIVITY OF TEETH
     Dates: start: 201311, end: 20131120

REACTIONS (4)
  - Tongue movement disturbance [None]
  - Lip pain [None]
  - Oral mucosal erythema [None]
  - Oral pain [None]
